FAERS Safety Report 6550864-0 (Version None)
Quarter: 2010Q1

REPORT INFORMATION
  Report Type: 
  Country: None (occurrence: None)
  Receive Date: 20100122
  Receipt Date: 20100122
  Transmission Date: 20100710
  Serious: No
  Sender: FDA-Public Use
  Company Number: None

PATIENT
  Age: 72 Year
  Sex: Male
  Weight: 98.4 kg

DRUGS (2)
  1. NITROFURANTOIN [Suspect]
     Indication: INFECTION
     Dosage: 100 MG BID PO
     Route: 048
     Dates: start: 20091029, end: 20091030
  2. INFLUENZA [Suspect]
     Indication: INFLUENZA IMMUNISATION
     Dosage: .5 ML ONCE IM
     Route: 030
     Dates: start: 20091015, end: 20091015

REACTIONS (3)
  - PRURITUS [None]
  - RASH [None]
  - URTICARIA [None]
